FAERS Safety Report 16565731 (Version 2)
Quarter: 2019Q3

REPORT INFORMATION
  Report Type: Spontaneous
  Country: US (occurrence: US)
  Receive Date: 20190712
  Receipt Date: 20190819
  Transmission Date: 20191004
  Serious: No
  Sender: FDA-Public Use
  Company Number: US-PFIZER INC-2019290978

PATIENT
  Age: 69 Year
  Sex: Female
  Weight: 83.45 kg

DRUGS (1)
  1. NEURONTIN [Suspect]
     Active Substance: GABAPENTIN
     Indication: NEUROPATHY PERIPHERAL
     Dosage: UNK

REACTIONS (3)
  - Anal incontinence [Recovered/Resolved]
  - Off label use [Unknown]
  - Product use in unapproved indication [Unknown]
